FAERS Safety Report 5476861-4 (Version None)
Quarter: 2007Q4

REPORT INFORMATION
  Report Type: 
  Country: None (occurrence: None)
  Receive Date: 20071004
  Receipt Date: 20070925
  Transmission Date: 20080405
  Serious: Yes (Death, Hospitalization)
  Sender: FDA-Public Use
  Company Number: GB-AMGEN-UK233235

PATIENT
  Sex: Male

DRUGS (2)
  1. PANITUMUMAB [Suspect]
     Indication: COLORECTAL CANCER
     Route: 042
     Dates: start: 20070529, end: 20070619
  2. IRINOTECAN HCL [Suspect]
     Route: 042
     Dates: start: 20070529, end: 20070619

REACTIONS (1)
  - INTERSTITIAL LUNG DISEASE [None]
